FAERS Safety Report 20020231 (Version 4)
Quarter: 2022Q4

REPORT INFORMATION
  Report Type: Report from Study
  Country: ES (occurrence: ES)
  Receive Date: 20211101
  Receipt Date: 20221017
  Transmission Date: 20230112
  Serious: Yes (Other)
  Sender: FDA-Public Use
  Company Number: ES-PFIZER INC-202101415368

PATIENT
  Age: 71 Year
  Sex: Male
  Weight: 92 kg

DRUGS (6)
  1. TALAZOPARIB [Suspect]
     Active Substance: TALAZOPARIB
     Indication: Prostate cancer
     Dosage: 0.5 MG, DAILY
     Route: 048
     Dates: start: 20210210, end: 20211020
  2. ENZALUTAMIDE [Suspect]
     Active Substance: ENZALUTAMIDE
     Indication: Prostate cancer
     Dosage: 160 MG, DAILY
     Route: 048
     Dates: start: 20201216
  3. BISOPROLOL [Concomitant]
     Active Substance: BISOPROLOL
     Indication: Atrial fibrillation
     Dosage: UNK
     Route: 048
     Dates: start: 2020
  4. SIMVASTATIN [Concomitant]
     Active Substance: SIMVASTATIN
     Indication: Dyslipidaemia
     Dosage: UNK
     Route: 048
     Dates: start: 2020
  5. BICALUTAMIDE [Concomitant]
     Active Substance: BICALUTAMIDE
     Indication: Prostate cancer
     Dosage: UNK
     Route: 048
     Dates: start: 20201112
  6. ZOLADEX [Concomitant]
     Active Substance: GOSERELIN ACETATE
     Indication: Prostate cancer
     Dosage: UNK
     Route: 048
     Dates: start: 20201125

REACTIONS (2)
  - Pulmonary embolism [Recovered/Resolved]
  - Pulmonary infarction [Recovered/Resolved]

NARRATIVE: CASE EVENT DATE: 20211020
